FAERS Safety Report 8666710 (Version 2)
Quarter: 2012Q4

REPORT INFORMATION
  Report Type: Spontaneous
  Country: GB (occurrence: None)
  Receive Date: 20120627
  Receipt Date: 20121123
  Transmission Date: 20130627
  Serious: Yes (Hospitalization)
  Sender: FDA-Public Use
  Company Number: 2012AP001837

PATIENT
  Age: 37 Year
  Sex: Male

DRUGS (6)
  1. OMEPRAZOLE [Suspect]
     Indication: ABDOMINAL DISCOMFORT
     Dosage: 20 MG PO QD
     Route: 048
     Dates: start: 20110427
  2. OMEPRAZOLE [Suspect]
     Indication: ABDOMINAL DISCOMFORT
     Dosage: 20 MG PO QD
     Route: 048
     Dates: start: 20110603, end: 201110
  3. DOXYCYCLINE [Concomitant]
  4. QUETIAPINE [Concomitant]
  5. TRIMETHOPRIM [Concomitant]
  6. MACROGOL 3350 (MACROGOL 3350) [Concomitant]

REACTIONS (19)
  - Anaemia [None]
  - Anxiety [None]
  - Dry skin [None]
  - Pyrexia [None]
  - Hair colour changes [None]
  - Hyperchlorhydria [None]
  - Jaundice [None]
  - Nausea [None]
  - Photosensitivity reaction [None]
  - Abdominal discomfort [None]
  - Temperature regulation disorder [None]
  - Dental caries [None]
  - Vomiting [None]
  - Abdominal distension [None]
  - Dehydration [None]
  - Gastric polyps [None]
  - Impaired healing [None]
  - Nail disorder [None]
  - Skin discolouration [None]
